FAERS Safety Report 8665926 (Version 4)
Quarter: 2013Q1

REPORT INFORMATION
  Report Type: Spontaneous
  Country: AR (occurrence: AR)
  Receive Date: 20120716
  Receipt Date: 20130304
  Transmission Date: 20140127
  Serious: Yes (Other)
  Sender: FDA-Public Use
  Company Number: AR-PFIZER INC-2012165251

PATIENT
  Age: 51 Year
  Sex: Female

DRUGS (9)
  1. SOMAVERT [Suspect]
     Indication: ACROMEGALY
     Dosage: 10 MG, 1X/DAY
     Route: 058
     Dates: start: 20111201
  2. SOMAVERT [Suspect]
     Dosage: 15 MG, 3 TIMES A WEEK
     Route: 058
     Dates: start: 201206
  3. LEVOTHYROXINE [Concomitant]
     Dosage: UNK
  4. LOSARTAN [Concomitant]
     Dosage: UNK
  5. METFORMIN [Concomitant]
     Dosage: UNK
  6. HIDROCORTIZON [Concomitant]
     Dosage: UNK
  7. INSULIN [Concomitant]
     Dosage: UNK
  8. OMEPRAZOLE [Concomitant]
     Dosage: UNK
  9. PREGABALIN [Concomitant]
     Dosage: UNK

REACTIONS (2)
  - Diabetes mellitus [Not Recovered/Not Resolved]
  - Fatigue [Recovered/Resolved]
